FAERS Safety Report 6305394-8 (Version None)
Quarter: 2009Q3

REPORT INFORMATION
  Report Type: 
  Country: None (occurrence: None)
  Receive Date: 20090807
  Receipt Date: 20090724
  Transmission Date: 20100115
  Serious: Yes (Other)
  Sender: FDA-Public Use
  Company Number: 2009-02889

PATIENT
  Age: 63 Year
  Sex: Male
  Weight: 72 kg

DRUGS (2)
  1. VELCADE [Suspect]
     Indication: MULTIPLE MYELOMA
     Dosage: 1.3 MG/M2, INTRAVENOUS
     Route: 042
     Dates: start: 20090703
  2. CANDESARTAN CILEXETIL [Concomitant]

REACTIONS (4)
  - DIZZINESS [None]
  - LEUKOARAIOSIS [None]
  - LEUKOENCEPHALOPATHY [None]
  - VERTIGO [None]
